FAERS Safety Report 7759034-1 (Version None)
Quarter: 2011Q3

REPORT INFORMATION
  Report Type: 
  Country: None (occurrence: None)
  Receive Date: 20110915
  Receipt Date: 20110910
  Transmission Date: 20111222
  Serious: Yes (Hospitalization)
  Sender: FDA-Public Use
  Company Number: CIO11011067

PATIENT
  Age: 42 Year
  Sex: Female
  Weight: 90.7 kg

DRUGS (3)
  1. METAMUCIL-2 [Suspect]
     Indication: BOWEL MOVEMENT IRREGULARITY
     Dosage: 1 CAPSUL, 1/DAY, ORAL
     Route: 048
     Dates: start: 20101101, end: 20110213
  2. MORPHINE [Concomitant]
  3. ZOLOFT [Concomitant]

REACTIONS (7)
  - CHEST PAIN [None]
  - VOMITING [None]
  - CHOKING [None]
  - DYSPNOEA [None]
  - BLOOD PRESSURE INCREASED [None]
  - NAUSEA [None]
  - RETCHING [None]
